FAERS Safety Report 24575984 (Version 1)
Quarter: 2024Q4

REPORT INFORMATION
  Report Type: Spontaneous
  Country: US (occurrence: None)
  Receive Date: 20241102
  Receipt Date: 20241102
  Transmission Date: 20250115
  Serious: No
  Sender: Public
  Company Number: None

PATIENT
  Age: 76 Year
  Sex: Female
  Weight: 49.5 kg

DRUGS (4)
  1. QULIPTA [Suspect]
     Active Substance: ATOGEPANT
     Indication: Migraine
     Dosage: FREQUENCY : AT BEDTIME;?
     Route: 048
     Dates: start: 202410
  2. CALCIUM\MAGNESIUM [Concomitant]
     Active Substance: CALCIUM\MAGNESIUM
  3. VITAMIN D NOS [Concomitant]
     Active Substance: CHOLECALCIFEROL\ERGOCALCIFEROL
  4. B2 [Concomitant]

REACTIONS (4)
  - Therapeutic product effect decreased [None]
  - Treatment failure [None]
  - Headache [None]
  - Alopecia [None]

NARRATIVE: CASE EVENT DATE: 20241008
